FAERS Safety Report 18064858 (Version 2)
Quarter: 2020Q3

REPORT INFORMATION
  Report Type: Other
  Country: CA (occurrence: CA)
  Receive Date: 20200724
  Receipt Date: 20200807
  Transmission Date: 20201103
  Serious: Yes (Hospitalization, Other)
  Sender: FDA-Public Use
  Company Number: CA-ACCORD-191859

PATIENT
  Age: 11 Year
  Sex: Male

DRUGS (9)
  1. PREDNISOLONE. [Suspect]
     Active Substance: PREDNISOLONE
     Indication: MACULAR OEDEMA
     Dosage: EVERY 1 HOURS, NOT SPECIFIED
     Route: 061
  2. FOLIC ACID. [Concomitant]
     Active Substance: FOLIC ACID
     Indication: MACULAR OEDEMA
     Dosage: NOT SPECIFIED, 1 EVERY 1 DAYS
     Route: 048
  3. METHOTREXATE. [Suspect]
     Active Substance: METHOTREXATE
     Indication: MACULAR OEDEMA
     Dosage: 1 EVERY 1 WEEKS
     Route: 058
  4. DEXAMETHASONE. [Concomitant]
     Active Substance: DEXAMETHASONE
     Indication: MACULAR OEDEMA
     Dosage: NOT SPECIFIED
     Route: 065
  5. DEXAMETHASONE MYLAN [Suspect]
     Active Substance: DEXAMETHASONE
     Indication: MACULAR OEDEMA
     Dosage: NOT SPECIFIED
     Route: 061
  6. PREDNISOLONE. [Concomitant]
     Active Substance: PREDNISOLONE
     Indication: MACULAR OEDEMA
     Dosage: NOT SPECIFIED, 1 EVERY 1 HOURS
     Route: 065
  7. HOMATROPINE [Concomitant]
     Active Substance: HOMATROPINE HYDROBROMIDE
     Indication: MACULAR OEDEMA
     Dosage: FREQUENCY: 2 EVERY 1 DAYS, EVERY .5 DAYS
     Route: 031
  8. PREDNISOLONE. [Suspect]
     Active Substance: PREDNISOLONE
     Indication: MACULAR OEDEMA
     Route: 047
  9. DEXAMETHASONE MYLAN [Suspect]
     Active Substance: DEXAMETHASONE
     Indication: MACULAR OEDEMA
     Route: 065

REACTIONS (5)
  - Product use issue [Unknown]
  - Macular oedema [Recovered/Resolved]
  - Condition aggravated [Recovered/Resolved]
  - Off label use [Unknown]
  - Drug ineffective [Unknown]
